FAERS Safety Report 20011225 (Version 2)
Quarter: 2021Q4

REPORT INFORMATION
  Report Type: Spontaneous
  Country: US (occurrence: US)
  Receive Date: 20211029
  Receipt Date: 20211229
  Transmission Date: 20220303
  Serious: Yes (Death, Other)
  Sender: FDA-Public Use
  Company Number: US-GLAXOSMITHKLINE-US2021221613

PATIENT
  Sex: Female

DRUGS (2)
  1. VENTOLIN HFA [Suspect]
     Active Substance: ALBUTEROL SULFATE
     Indication: Product used for unknown indication
     Dosage: 2 PUFF(S), Z (EVERY 4 HOURS AS NEEDED)
     Route: 055
     Dates: start: 201801, end: 20211005
  2. ADVAIR DISKUS [Suspect]
     Active Substance: FLUTICASONE PROPIONATE\SALMETEROL XINAFOATE
     Indication: Product used for unknown indication
     Dosage: 1 PUFF(S), BID (EVERY 12 HOURS AS DIRECTED)
     Route: 055
     Dates: start: 201801, end: 20211005

REACTIONS (3)
  - Cardiac arrest [Fatal]
  - Ovarian cancer stage IV [Fatal]
  - Expired product administered [Unknown]

NARRATIVE: CASE EVENT DATE: 20210101
